FAERS Safety Report 7403324-9 (Version None)
Quarter: 2011Q2

REPORT INFORMATION
  Report Type: 
  Country: None (occurrence: None)
  Receive Date: 20110408
  Receipt Date: 20110330
  Transmission Date: 20111010
  Serious: Yes (Hospitalization, Other)
  Sender: FDA-Public Use
  Company Number: US-CEPHALON-2011001506

PATIENT
  Age: 91 Year
  Sex: Female

DRUGS (18)
  1. SPIRIVA [Concomitant]
  2. KLOR-CON [Concomitant]
  3. MEGACE [Concomitant]
  4. AVINZA [Concomitant]
  5. MAPAP [Concomitant]
  6. ADVAIR HFA [Concomitant]
  7. LISINOPRIL [Concomitant]
  8. FUROSEMIDE [Concomitant]
  9. AZITHROMYCIN [Concomitant]
  10. SENNA PLUS [Concomitant]
  11. OPIOID [Concomitant]
  12. LIDODERM [Concomitant]
  13. PROVIGIL [Suspect]
     Indication: FATIGUE
     Route: 048
     Dates: start: 20080101
  14. MULTI-VITAMINS [Concomitant]
  15. ALENDRONATE SODIUM [Concomitant]
  16. IRON [Concomitant]
  17. PROAIR HFA [Concomitant]
  18. VITAMIN D [Concomitant]

REACTIONS (4)
  - HAEMOGLOBIN DECREASED [None]
  - DRY MOUTH [None]
  - PNEUMONIA [None]
  - HOSPICE CARE [None]
